FAERS Safety Report 15709803 (Version 3)
Quarter: 2018Q4

REPORT INFORMATION
  Report Type: Spontaneous
  Country: US (occurrence: US)
  Receive Date: 20181211
  Receipt Date: 20181222
  Transmission Date: 20190205
  Serious: No
  Sender: FDA-Public Use
  Company Number: US-UNITED THERAPEUTICS-UNT-2018-020171

PATIENT
  Sex: Female
  Weight: 95.69 kg

DRUGS (6)
  1. TYVASO [Suspect]
     Active Substance: TREPROSTINIL
     Dosage: 60 ?G, QID
  2. ADEMPAS [Concomitant]
     Active Substance: RIOCIGUAT
     Indication: PRODUCT USED FOR UNKNOWN INDICATION
     Dosage: UNK
     Route: 065
  3. TYVASO [Suspect]
     Active Substance: TREPROSTINIL
     Dosage: 60-120 MICROGRAMS, QID
  4. TYVASO [Suspect]
     Active Substance: TREPROSTINIL
     Dosage: 66 ?G, QID
  5. TYVASO [Suspect]
     Active Substance: TREPROSTINIL
     Indication: PULMONARY ARTERIAL HYPERTENSION
     Dosage: 18-54 MICROGRAMS, QID
     Dates: start: 20180904
  6. AMLODIPINE [Concomitant]
     Active Substance: AMLODIPINE BESYLATE
     Indication: PRODUCT USED FOR UNKNOWN INDICATION
     Dosage: UNK
     Route: 065

REACTIONS (9)
  - Hepatomegaly [Unknown]
  - Anaemia [Unknown]
  - Walking distance test abnormal [Unknown]
  - Condition aggravated [Unknown]
  - Off label use [Unknown]
  - Platelet count decreased [Unknown]
  - Insomnia [Unknown]
  - Abdominal pain [Unknown]
  - Back pain [Unknown]

NARRATIVE: CASE EVENT DATE: 2018
